FAERS Safety Report 8076968-1 (Version None)
Quarter: 2012Q1

REPORT INFORMATION
  Report Type: 
  Country: None (occurrence: None)
  Receive Date: 20120127
  Receipt Date: 20110117
  Transmission Date: 20120608
  Serious: Yes (Hospitalization)
  Sender: FDA-Public Use
  Company Number: US-GLAXOSMITHKLINE-A0908078A

PATIENT
  Age: 67 Year
  Sex: Male
  Weight: 108.2 kg

DRUGS (9)
  1. FLEXERIL [Concomitant]
  2. METFORMIN HCL [Concomitant]
  3. GLUCOTROL [Concomitant]
  4. AVANDAMET [Suspect]
     Indication: DIABETES MELLITUS
     Route: 048
  5. AVANDIA [Suspect]
     Indication: DIABETES MELLITUS
     Dosage: 8MG PER DAY
     Route: 048
     Dates: start: 20050101, end: 20070101
  6. LIPITOR [Concomitant]
  7. TRILEPTAL [Concomitant]
  8. FLOMAX [Concomitant]
  9. DIOVAN [Concomitant]

REACTIONS (2)
  - CARDIOVASCULAR DISORDER [None]
  - CEREBROVASCULAR ACCIDENT [None]
